FAERS Safety Report 20416493 (Version 1)
Quarter: 2022Q1

REPORT INFORMATION
  Report Type: Spontaneous
  Country: GB (occurrence: GB)
  Receive Date: 20220202
  Receipt Date: 20220202
  Transmission Date: 20220423
  Serious: Yes (Death, Other)
  Sender: FDA-Public Use
  Company Number: GB-BoehringerIngelheim-2020-BI-036162

PATIENT
  Sex: Female

DRUGS (1)
  1. OFEV [Suspect]
     Active Substance: NINTEDANIB
     Indication: Interstitial lung disease

REACTIONS (6)
  - Death [Fatal]
  - Diarrhoea [Unknown]
  - Off label use [Unknown]
  - Nausea [Unknown]
  - Illness [Unknown]
  - Anxiety [Unknown]
